FAERS Safety Report 4617492-5 (Version None)
Quarter: 2005Q1

REPORT INFORMATION
  Report Type: 
  Country: None (occurrence: None)
  Receive Date: 20050324
  Receipt Date: 20050315
  Transmission Date: 20050727
  Serious: Yes (Other)
  Sender: FDA-Public Use
  Company Number: US-JNJFOC-20050304484

PATIENT
  Sex: Male
  Weight: 66.68 kg

DRUGS (3)
  1. CONCERTA [Suspect]
     Indication: ATTENTION DEFICIT/HYPERACTIVITY DISORDER
     Route: 049
  2. ATOMOXETINE [Concomitant]
  3. RITALIN [Concomitant]

REACTIONS (2)
  - NYSTAGMUS [None]
  - ROAD TRAFFIC ACCIDENT [None]
